FAERS Safety Report 26100792 (Version 1)
Quarter: 2025Q4

REPORT INFORMATION
  Report Type: Report from Study
  Country: CA (occurrence: CA)
  Receive Date: 20251128
  Receipt Date: 20251128
  Transmission Date: 20260118
  Serious: Yes (Hospitalization)
  Sender: CSL BEHRING
  Company Number: CA-BEH-2025204259

PATIENT
  Age: 81 Year
  Sex: Male

DRUGS (2)
  1. VELTASSA [Suspect]
     Active Substance: PATIROMER
     Indication: Hyperkalaemia
     Dosage: TWO SACHETS A DAY OF 16.8GM
     Route: 048
     Dates: start: 20230417
  2. VELTASSA [Suspect]
     Active Substance: PATIROMER
     Dosage: 1 DF (ONE SACHET), OD
     Route: 048

REACTIONS (3)
  - Hospitalisation [Unknown]
  - Overdose [Unknown]
  - Therapy interrupted [Unknown]

NARRATIVE: CASE EVENT DATE: 20250427
